FAERS Safety Report 15796332 (Version 2)
Quarter: 2019Q1

REPORT INFORMATION
  Report Type: Report from Study
  Country: KR (occurrence: KR)
  Receive Date: 20190108
  Receipt Date: 20190114
  Transmission Date: 20190417
  Serious: Yes (Hospitalization)
  Sender: FDA-Public Use
  Company Number: KR-BRISTOL-MYERS SQUIBB COMPANY-BMS-2018-122166

PATIENT
  Age: 72 Year
  Sex: Male
  Weight: 57.6 kg

DRUGS (29)
  1. DEXILANT [Concomitant]
     Active Substance: DEXLANSOPRAZOLE
     Indication: DYSPEPSIA
     Dosage: 30 MG, QD
     Route: 048
     Dates: start: 20180920
  2. CELEBREX [Concomitant]
     Active Substance: CELECOXIB
     Indication: DYSPEPSIA
     Dosage: 400 MG, BID
     Route: 048
     Dates: start: 20181015
  3. URSA [Concomitant]
     Active Substance: URSODIOL
     Indication: CHOLESTASIS
     Route: 065
  4. TARGIN [Concomitant]
     Active Substance: NALOXONE HYDROCHLORIDE\OXYCODONE HYDROCHLORIDE
     Indication: PRODUCT USED FOR UNKNOWN INDICATION
     Dosage: 2 UNK, UNK
     Route: 048
     Dates: start: 20181212
  5. BLINDED PLACEBO [Suspect]
     Active Substance: INVESTIGATIONAL PRODUCT
     Indication: NON-SMALL CELL LUNG CANCER
     Dosage: 360 MG, QD
     Route: 065
     Dates: start: 20180503, end: 20181212
  6. CARBOPLATIN. [Suspect]
     Active Substance: CARBOPLATIN
     Indication: PRODUCT USED FOR UNKNOWN INDICATION
     Dosage: 506.3 MG, UNK
     Route: 065
     Dates: start: 20180615, end: 20180615
  7. BEVACIZUMAB. [Suspect]
     Active Substance: BEVACIZUMAB
     Indication: NON-SMALL CELL LUNG CANCER
     Dosage: 825 MG, QD
     Route: 065
     Dates: start: 20180503, end: 20181212
  8. CYMBALTA [Concomitant]
     Active Substance: DULOXETINE HYDROCHLORIDE
     Indication: PARAESTHESIA
     Dosage: 30 MG, QD
     Route: 048
     Dates: start: 20181031, end: 20181211
  9. RINO EBASTEL [Concomitant]
     Indication: RHINORRHOEA
     Dosage: 1 DF, QD
     Route: 048
     Dates: start: 20181031, end: 20181211
  10. HARNAL [Concomitant]
     Active Substance: TAMSULOSIN HYDROCHLORIDE
     Indication: DYSURIA
     Dosage: 0.2 MG, QD
     Route: 048
     Dates: start: 20181129
  11. CARBOPLATIN. [Suspect]
     Active Substance: CARBOPLATIN
     Indication: PRODUCT USED FOR UNKNOWN INDICATION
     Dosage: 650.2 MG, UNK
     Route: 065
     Dates: start: 20180524, end: 20180524
  12. CARBOPLATIN. [Suspect]
     Active Substance: CARBOPLATIN
     Indication: PRODUCT USED FOR UNKNOWN INDICATION
     Dosage: 493.1 MG, UNK
     Route: 065
     Dates: start: 20180709, end: 20180709
  13. TARGIN [Concomitant]
     Active Substance: NALOXONE HYDROCHLORIDE\OXYCODONE HYDROCHLORIDE
     Indication: ARTHRALGIA
     Dosage: 2 TAB, BID
     Route: 048
     Dates: start: 20180809, end: 20181211
  14. COUGH SYRUP                        /00872901/ [Concomitant]
     Indication: PRODUCTIVE COUGH
     Dosage: 60 ML, TID
     Route: 048
     Dates: start: 20181121, end: 20181223
  15. URSA [Concomitant]
     Active Substance: URSODIOL
     Indication: CHOLELITHIASIS
     Dosage: 600 MG, TID
     Route: 048
     Dates: start: 20181212
  16. PACLITAXEL. [Suspect]
     Active Substance: PACLITAXEL
     Indication: PRODUCT USED FOR UNKNOWN INDICATION
     Dosage: 241.5 MG, QD
     Route: 065
     Dates: start: 20180615, end: 20180709
  17. NEURONTIN [Concomitant]
     Active Substance: GABAPENTIN
     Indication: PARAESTHESIA
     Dosage: 200 MG, BID
     Route: 048
     Dates: start: 20181121
  18. PHENIRAMINE [Concomitant]
     Active Substance: PHENIRAMINE
     Indication: DYSURIA
     Dosage: 4 MG, QD
     Route: 042
     Dates: start: 20181212, end: 20181212
  19. ROWACHOL                           /06253701/ [Concomitant]
     Indication: CHOLESTASIS
     Route: 065
  20. PACLITAXEL. [Suspect]
     Active Substance: PACLITAXEL
     Indication: NON-SMALL CELL LUNG CANCER
     Dosage: 322 MG, QD
     Route: 065
     Dates: start: 20180503, end: 20180524
  21. TRAJENTA [Concomitant]
     Active Substance: LINAGLIPTIN
     Indication: PRODUCT USED FOR UNKNOWN INDICATION
     Dosage: 2 TAB, BID
     Route: 048
     Dates: start: 20181212
  22. TOUJEO [Concomitant]
     Active Substance: INSULIN GLARGINE
     Indication: TYPE 2 DIABETES MELLITUS
     Dosage: 1 DF, QD
     Route: 058
     Dates: start: 20181121
  23. ALLEGRA [Concomitant]
     Active Substance: FEXOFENADINE HYDROCHLORIDE
     Indication: RHINORRHOEA
     Dosage: 120 MG, QD
     Route: 048
     Dates: start: 20181212
  24. BLINDED NIVOLUMAB [Suspect]
     Active Substance: NIVOLUMAB
     Indication: NON-SMALL CELL LUNG CANCER
     Dosage: 360 MG, QD
     Route: 065
     Dates: start: 20180503, end: 20181212
  25. NUCYNTA ER [Concomitant]
     Active Substance: TAPENTADOL HYDROCHLORIDE
     Indication: PARAESTHESIA
     Dosage: 100 MG, BID
     Route: 048
     Dates: start: 20180830, end: 20181211
  26. MEGESTROL ACETATE. [Concomitant]
     Active Substance: MEGESTROL ACETATE
     Indication: DECREASED APPETITE
     Dosage: 20 ML, BID
     Route: 048
     Dates: start: 20181030
  27. ROWACHOL                           /06253701/ [Concomitant]
     Indication: CHOLELITHIASIS
     Dosage: 1 DF, TID
     Route: 048
     Dates: start: 20181212
  28. CARBOPLATIN. [Suspect]
     Active Substance: CARBOPLATIN
     Indication: NON-SMALL CELL LUNG CANCER
     Dosage: 577.4 MG, QD
     Route: 065
     Dates: start: 20180503, end: 20180503
  29. TRAJENTA [Concomitant]
     Active Substance: LINAGLIPTIN
     Indication: TYPE 2 DIABETES MELLITUS
     Dosage: 5 MG, QD
     Route: 048
     Dates: start: 20180327, end: 20181211

REACTIONS (1)
  - Dizziness [Recovered/Resolved]

NARRATIVE: CASE EVENT DATE: 20181217
